FAERS Safety Report 23296647 (Version 1)
Quarter: 2023Q4

REPORT INFORMATION
  Report Type: Spontaneous
  Country: US (occurrence: US)
  Receive Date: 20231214
  Receipt Date: 20231214
  Transmission Date: 20240110
  Serious: No
  Sender: FDA-Public Use
  Company Number: US-SANDOZ-SDZ2023US067072

PATIENT
  Sex: Female

DRUGS (1)
  1. POLYMYXIN B SULFATE\TRIMETHOPRIM [Suspect]
     Active Substance: POLYMYXIN B SULFATE\TRIMETHOPRIM
     Indication: Eye disorder
     Dosage: UNK, 3 DROPS
     Route: 047
     Dates: start: 20231209

REACTIONS (5)
  - Eye pain [Unknown]
  - Eye swelling [Unknown]
  - Eye injury [Unknown]
  - Eye irritation [Unknown]
  - Eye inflammation [Unknown]

NARRATIVE: CASE EVENT DATE: 20231209
